FAERS Safety Report 14204119 (Version 1)
Quarter: 2017Q4

REPORT INFORMATION
  Report Type: Spontaneous
  Country: US (occurrence: US)
  Receive Date: 20171117
  Receipt Date: 20171117
  Transmission Date: 20180321
  Serious: Yes (Disabling)
  Sender: FDA-Public Use
  Company Number: None

PATIENT
  Age: 58 Year
  Sex: Male
  Weight: 157.5 kg

DRUGS (10)
  1. HUMALOG [Concomitant]
     Active Substance: INSULIN LISPRO
  2. SINGULAIR [Concomitant]
     Active Substance: MONTELUKAST SODIUM
  3. VITAMIN B12 [Concomitant]
     Active Substance: CYANOCOBALAMIN
  4. TRIBENZOR [Concomitant]
     Active Substance: AMLODIPINE BESYLATE\HYDROCHLOROTHIAZIDE\OLMESARTAN MEDOXOMIL
  5. COMBINAN [Concomitant]
  6. LANTUS [Concomitant]
     Active Substance: INSULIN GLARGINE
  7. TOUJEO [Suspect]
     Active Substance: INSULIN GLARGINE
     Indication: PRODUCT USED FOR UNKNOWN INDICATION
     Dosage: OTHER STRENGTH:PEN;QUANTITY:30 UNITS;?
     Route: 058
     Dates: start: 20170923, end: 20170924
  8. CLONIDINE. [Concomitant]
     Active Substance: CLONIDINE
  9. DULOXETINE. [Concomitant]
     Active Substance: DULOXETINE
  10. VITAMIN D3 [Concomitant]
     Active Substance: CHOLECALCIFEROL

REACTIONS (2)
  - Pruritus [None]
  - Stevens-Johnson syndrome [None]

NARRATIVE: CASE EVENT DATE: 20170923
